FAERS Safety Report 8600051-7 (Version None)
Quarter: 2012Q3

REPORT INFORMATION
  Report Type: 
  Country: None (occurrence: None)
  Receive Date: 20120816
  Receipt Date: 20110923
  Transmission Date: 20120928
  Serious: Yes (Life-Threatening, Hospitalization)
  Sender: FDA-Public Use
  Company Number: PHEH2011US013190

PATIENT
  Sex: Male

DRUGS (3)
  1. FLUOXETINE HCL [Concomitant]
     Dosage: UNK UKN, UNK
  2. FOCALIN XR [Suspect]
     Dosage: 10MG IN THE MORNING AND 15MG IN THE EVENING
  3. RISPERIDONE [Concomitant]
     Dosage: UNK UKN, UNK

REACTIONS (2)
  - SUICIDE ATTEMPT [None]
  - SUICIDAL IDEATION [None]
